FAERS Safety Report 9320138 (Version 1)
Quarter: 2013Q2

REPORT INFORMATION
  Report Type: Spontaneous
  Country: VN (occurrence: VN)
  Receive Date: 20130530
  Receipt Date: 20130530
  Transmission Date: 20140414
  Serious: Yes (Death, Hospitalization, Other)
  Sender: FDA-Public Use
  Company Number: VN-BAXTER-2013BAX019865

PATIENT
  Sex: Male

DRUGS (2)
  1. DIANEAL LOW CALCIUM (2,5MEQ.L) PERITIONEAL DIALYSIS SOLUTION WITH 1.5% [Suspect]
     Indication: PERITONEAL DIALYSIS
     Route: 033
     Dates: start: 20090910, end: 20130502
  2. DIANEAL LOW CALCIUM (2,5MEQ.L) PERITIONEAL DIALYSIS SOLUTION WITH 2.5% [Suspect]
     Indication: PERITONEAL DIALYSIS
     Route: 033
     Dates: start: 20090910, end: 20130502

REACTIONS (8)
  - Myocardial infarction [Fatal]
  - Renal failure chronic [Fatal]
  - Cardiac failure [Fatal]
  - Chest pain [Unknown]
  - Malaise [Unknown]
  - Hypotension [Unknown]
  - Dyspnoea [Unknown]
  - Fatigue [Unknown]
